FAERS Safety Report 9008577 (Version 2)
Quarter: 2014Q1

REPORT INFORMATION
  Report Type: Spontaneous
  Country: US (occurrence: US)
  Receive Date: 20130111
  Receipt Date: 20140117
  Transmission Date: 20141002
  Serious: Yes (Hospitalization, Other)
  Sender: FDA-Public Use
  Company Number: US-BAYER-2013-003263

PATIENT
  Age: 34 Year
  Sex: Female

DRUGS (4)
  1. YASMIN [Suspect]
     Indication: ACNE
  2. AUGMENTIN [Concomitant]
     Dosage: 875-125 MG
     Dates: start: 20080528
  3. MAXALT [Concomitant]
     Dosage: 10 MG, UNK
     Dates: start: 20080528
  4. FLUCONAZOLE [Concomitant]
     Dosage: 150 MG, UNK
     Dates: start: 20080602

REACTIONS (8)
  - Deep vein thrombosis [None]
  - Pulmonary embolism [None]
  - Cholecystectomy [None]
  - Cholelithiasis [None]
  - Pain [None]
  - Injury [None]
  - Pain [None]
  - Anxiety [None]
